FAERS Safety Report 9342448 (Version 1)
Quarter: 2013Q2

REPORT INFORMATION
  Report Type: Spontaneous
  Country: FR (occurrence: FR)
  Receive Date: 20130611
  Receipt Date: 20130611
  Transmission Date: 20140414
  Serious: Yes (Other)
  Sender: FDA-Public Use
  Company Number: PHHY2013FR057397

PATIENT
  Age: 52 Year
  Sex: Male

DRUGS (6)
  1. CICLOSPORIN [Suspect]
     Indication: FIBRILLARY GLOMERULONEPHRITIS
  2. CYCLOPHOSPHAMIDE [Suspect]
     Indication: FIBRILLARY GLOMERULONEPHRITIS
  3. STEROIDS NOS [Suspect]
     Indication: FIBRILLARY GLOMERULONEPHRITIS
  4. ANGIOTENSIN CONVERTING ENZYME BLOCKERS [Suspect]
     Indication: FIBRILLARY GLOMERULONEPHRITIS
  5. RITUXIMAB [Suspect]
     Indication: FIBRILLARY GLOMERULONEPHRITIS
  6. BORTEZOMIB [Suspect]
     Indication: FIBRILLARY GLOMERULONEPHRITIS

REACTIONS (3)
  - Renal failure chronic [Unknown]
  - Fibrillary glomerulonephritis [Unknown]
  - Drug ineffective [Unknown]
